FAERS Safety Report 6233939-5 (Version None)
Quarter: 2009Q2

REPORT INFORMATION
  Report Type: 
  Country: None (occurrence: None)
  Receive Date: 20090618
  Receipt Date: 20090610
  Transmission Date: 20091009
  Serious: Yes (Hospitalization)
  Sender: FDA-Public Use
  Company Number: FR-JNJFOC-20090603254

PATIENT
  Sex: Female

DRUGS (6)
  1. DURAGESIC-100 [Suspect]
     Indication: CANCER PAIN
     Route: 062
  2. COTAREG [Suspect]
     Indication: HYPERTENSION
     Route: 048
  3. ACTISKENAN [Suspect]
     Indication: CANCER PAIN
     Route: 048
  4. NOCTRAN [Suspect]
     Indication: INSOMNIA
     Route: 048
  5. DIANTALVIC [Suspect]
     Indication: PAIN
     Route: 048
  6. FLUINDIONE [Concomitant]
     Indication: THROMBOSIS
     Route: 048

REACTIONS (4)
  - ANOREXIA [None]
  - CONFUSIONAL STATE [None]
  - DISTURBANCE IN ATTENTION [None]
  - SOMNOLENCE [None]
